FAERS Safety Report 21041353 (Version 1)
Quarter: 2022Q3

REPORT INFORMATION
  Report Type: Spontaneous
  Country: JP (occurrence: JP)
  Receive Date: 20220705
  Receipt Date: 20220705
  Transmission Date: 20221027
  Serious: Yes (Life-Threatening, Hospitalization, Other)
  Sender: FDA-Public Use
  Company Number: JP-NOVOPROD-932382

PATIENT
  Age: 32 Year
  Sex: Female
  Weight: 51.7 kg

DRUGS (2)
  1. NOVORAPID [Suspect]
     Active Substance: INSULIN ASPART
     Indication: Type 1 diabetes mellitus
     Dosage: 30 IU, QD (10-10-10)
     Route: 058
  2. INSULIN GLARGINE RECOMBINANT [Concomitant]
     Active Substance: INSULIN GLARGINE
     Indication: Type 1 diabetes mellitus
     Dosage: 28 IU, QD (14-0-14)
     Route: 058

REACTIONS (4)
  - Ketoacidosis [Recovered/Resolved]
  - Altered state of consciousness [Recovered/Resolved]
  - COVID-19 [Unknown]
  - Intentional product use issue [Unknown]
